FAERS Safety Report 12467583 (Version 1)
Quarter: 2016Q2

REPORT INFORMATION
  Report Type: Spontaneous
  Country: US (occurrence: US)
  Receive Date: 20160615
  Receipt Date: 20160615
  Transmission Date: 20160815
  Serious: Yes (Hospitalization, Other)
  Sender: FDA-Public Use
  Company Number: US-LUPIN PHARMACEUTICALS INC.-2016-02537

PATIENT
  Age: 59 Year
  Sex: Female
  Weight: 108.05 kg

DRUGS (2)
  1. CELECOXIB CAPSULES 200 MG [Suspect]
     Active Substance: CELECOXIB
     Indication: ARTHRITIS
     Route: 048
     Dates: start: 20160224, end: 20160226
  2. TYLENOL [Concomitant]
     Active Substance: ACETAMINOPHEN
     Indication: SINUS HEADACHE
     Route: 065
     Dates: start: 20160225

REACTIONS (7)
  - Jaundice [Unknown]
  - Drug-induced liver injury [Recovered/Resolved with Sequelae]
  - Impaired work ability [Recovered/Resolved]
  - Sinus headache [Unknown]
  - Malaise [Unknown]
  - Sinusitis [Unknown]
  - Fatigue [Recovered/Resolved]

NARRATIVE: CASE EVENT DATE: 20160226
